FAERS Safety Report 20392360 (Version 1)
Quarter: 2022Q1

REPORT INFORMATION
  Report Type: Spontaneous
  Country: US (occurrence: US)
  Receive Date: 20220128
  Receipt Date: 20220128
  Transmission Date: 20220423
  Serious: No
  Sender: FDA-Public Use
  Company Number: US-SUNOVION-2022SUN000163

PATIENT
  Sex: Female

DRUGS (1)
  1. APTIOM [Suspect]
     Active Substance: ESLICARBAZEPINE ACETATE
     Indication: Seizure
     Dosage: 600 MG, BID (600 MG AFTER DINNER AND 600 MG HS)
     Route: 048

REACTIONS (2)
  - Tremor [Recovered/Resolved]
  - Inappropriate schedule of product administration [Unknown]
